FAERS Safety Report 25928967 (Version 1)
Quarter: 2025Q4

REPORT INFORMATION
  Report Type: Spontaneous
  Country: US (occurrence: US)
  Receive Date: 20251016
  Receipt Date: 20251016
  Transmission Date: 20260117
  Serious: Yes (Life-Threatening, Other)
  Sender: RANBAXY
  Company Number: US-SUN PHARMACEUTICAL INDUSTRIES INC-2025R1-531622

PATIENT
  Age: 56 Year
  Sex: Male

DRUGS (1)
  1. CLOZAPINE [Suspect]
     Active Substance: CLOZAPINE
     Indication: Schizophrenia
     Dosage: 25MG AND 100MG
     Route: 065

REACTIONS (4)
  - Toxicity to various agents [Unknown]
  - Unresponsive to stimuli [Unknown]
  - Mental status changes [Unknown]
  - Electrocardiogram QT prolonged [Unknown]
